FAERS Safety Report 8684404 (Version 2)
Quarter: 2012Q4

REPORT INFORMATION
  Report Type: 
  Country: US (occurrence: US)
  Receive Date: 20120726
  Receipt Date: 20120911
  Transmission Date: 20130627
  Serious: Yes (Other)
  Sender: FDA-Public Use
  Company Number: US-ASTRAZENECA-2012SE50268

PATIENT
  Age: 75 Year
  Sex: Female
  Weight: 45.4 kg

DRUGS (4)
  1. SYMBICORT [Suspect]
     Indication: ASTHMA
     Dosage: 160/4.5 MCG, TWO PUFFS, TWO TIMES A DAY
     Route: 055
     Dates: start: 2009
  2. FUROSIMIDE [Concomitant]
  3. CALCIUM [Concomitant]
     Indication: OSTEOPOROSIS
  4. MULTIVITAMIN [Concomitant]
     Indication: HAIR DISORDER

REACTIONS (5)
  - Malignant melanoma [Unknown]
  - Cataract [Unknown]
  - Alopecia [Unknown]
  - Dry mouth [Unknown]
  - Candidiasis [Recovered/Resolved]
